FAERS Safety Report 13815258 (Version 1)
Quarter: 2017Q3

REPORT INFORMATION
  Report Type: Spontaneous
  Country: US (occurrence: US)
  Receive Date: 20170729
  Receipt Date: 20170729
  Transmission Date: 20171127
  Serious: Yes (Other)
  Sender: FDA-Public Use
  Company Number: None

PATIENT
  Age: 59 Year
  Sex: Female

DRUGS (3)
  1. SUVOREXANT. [Suspect]
     Active Substance: SUVOREXANT
     Indication: SUICIDAL IDEATION
     Route: 048
     Dates: start: 20160211, end: 20160212
  2. SUVOREXANT. [Suspect]
     Active Substance: SUVOREXANT
     Indication: DEPRESSION
     Route: 048
     Dates: start: 20160211, end: 20160212
  3. BELSOMRA [Concomitant]
     Active Substance: SUVOREXANT

REACTIONS (2)
  - Suicidal ideation [None]
  - Depression [None]

NARRATIVE: CASE EVENT DATE: 20160212
